FAERS Safety Report 15507841 (Version 2)
Quarter: 2018Q4

REPORT INFORMATION
  Report Type: Spontaneous
  Country: US (occurrence: US)
  Receive Date: 20181016
  Receipt Date: 20181025
  Transmission Date: 20190205
  Serious: No
  Sender: FDA-Public Use
  Company Number: US-ELI_LILLY_AND_COMPANY-US201810001359

PATIENT
  Age: 44 Year
  Sex: Female

DRUGS (6)
  1. REMODULIN [Suspect]
     Active Substance: TREPROSTINIL
     Dosage: 72 UNK, UNK
  2. ADCIRCA [Suspect]
     Active Substance: TADALAFIL
     Dosage: 40 MG, DAILY
  3. REMODULIN [Suspect]
     Active Substance: TREPROSTINIL
     Indication: PULMONARY HYPERTENSION
     Dosage: 69 UG/KG, UNKNOWN
     Route: 065
     Dates: start: 20180814
  4. ADCIRCA [Suspect]
     Active Substance: TADALAFIL
     Indication: PULMONARY HYPERTENSION
     Dosage: UNK, UNKNOWN
     Route: 065
     Dates: start: 20180925
  5. AMBRISENTAN [Suspect]
     Active Substance: AMBRISENTAN
     Indication: PULMONARY HYPERTENSION
     Dosage: 10 MG, DAILY
     Route: 065
     Dates: start: 20150112
  6. REMODULIN [Suspect]
     Active Substance: TREPROSTINIL
     Dosage: 74 NG, EVERY SECOND

REACTIONS (5)
  - Pain in extremity [Recovered/Resolved]
  - Nasal congestion [Unknown]
  - Upper respiratory tract congestion [Unknown]
  - Headache [Unknown]
  - Overdose [Unknown]
